FAERS Safety Report 5409063-8 (Version None)
Quarter: 2007Q3

REPORT INFORMATION
  Report Type: 
  Country: None (occurrence: None)
  Receive Date: 20070808
  Receipt Date: 20070801
  Transmission Date: 20080115
  Serious: Yes (Hospitalization, Other)
  Sender: FDA-Public Use
  Company Number: DE-ABBOTT-07P-062-0358806-00

PATIENT
  Sex: Male
  Weight: 90 kg

DRUGS (8)
  1. HUMIRA [Suspect]
     Indication: RHEUMATOID ARTHRITIS
     Route: 058
     Dates: start: 20061004, end: 20061201
  2. HUMIRA [Suspect]
     Route: 058
     Dates: start: 20070101
  3. IBUPROFEN [Concomitant]
     Indication: RHEUMATOID ARTHRITIS
     Route: 048
     Dates: start: 20000401
  4. PREDNISOLONE [Concomitant]
     Indication: RHEUMATOID ARTHRITIS
     Route: 048
     Dates: end: 20070301
  5. PREDNISOLONE [Concomitant]
     Route: 048
     Dates: start: 20070301
  6. AMITRYPTILLIN [Concomitant]
     Indication: DRUG USE FOR UNKNOWN INDICATION
     Route: 048
  7. TOREM 10 [Concomitant]
     Indication: DRUG USE FOR UNKNOWN INDICATION
     Route: 048
  8. METOPROLOL 47.5 RET [Concomitant]
     Indication: DRUG USE FOR UNKNOWN INDICATION
     Route: 048
     Dates: start: 20070101

REACTIONS (7)
  - ASBESTOSIS [None]
  - EMPHYSEMA [None]
  - INFLAMMATION [None]
  - LUNG DISORDER [None]
  - LUNG NEOPLASM [None]
  - PERICARDIAL EFFUSION [None]
  - STAPHYLOCOCCAL INFECTION [None]
